FAERS Safety Report 5254215-3 (Version None)
Quarter: 2007Q1

REPORT INFORMATION
  Report Type: 
  Country: None (occurrence: None)
  Receive Date: 20070302
  Receipt Date: 20070219
  Transmission Date: 20070707
  Serious: Yes (Hospitalization)
  Sender: FDA-Public Use
  Company Number: PHHO2007BR03426

PATIENT
  Age: 46 Year
  Sex: Female

DRUGS (4)
  1. CYCLOSPORINE [Suspect]
     Indication: RENAL TRANSPLANT
     Dosage: 450 MG DAILY
     Route: 048
     Dates: start: 20061213
  2. CYCLOSPORINE [Suspect]
     Route: 048
  3. MYCOPHENOLATE MOFETIL [Concomitant]
     Indication: RENAL TRANSPLANT
     Dates: start: 20061211
  4. PREDNISONE [Concomitant]
     Indication: RENAL TRANSPLANT
     Dates: start: 20061214

REACTIONS (1)
  - DIABETES MELLITUS [None]
